FAERS Safety Report 6923282-0 (Version None)
Quarter: 2010Q3

REPORT INFORMATION
  Report Type: 
  Country: None (occurrence: None)
  Receive Date: 20100813
  Receipt Date: 20100803
  Transmission Date: 20110219
  Serious: Yes (Hospitalization)
  Sender: FDA-Public Use
  Company Number: US-SANOFI-AVENTIS-2010SA031858

PATIENT
  Age: 63 Year
  Sex: Female
  Weight: 62.59 kg

DRUGS (5)
  1. DDAVP [Suspect]
     Dosage: LAST DOSE @9:20 AM
     Route: 065
     Dates: start: 20100114, end: 20100114
  2. ASPIRIN [Concomitant]
     Dates: start: 20041101, end: 20100115
  3. LIPITOR [Concomitant]
     Dates: start: 20041101, end: 20100115
  4. MULTI-VITAMINS [Concomitant]
     Dates: start: 20040601, end: 20100115
  5. FISH OIL [Concomitant]
     Dates: start: 20040601, end: 20100115

REACTIONS (2)
  - CORONARY ARTERY OCCLUSION [None]
  - MYOCARDIAL INFARCTION [None]
